FAERS Safety Report 21280406 (Version 6)
Quarter: 2023Q1

REPORT INFORMATION
  Report Type: Report from Study
  Country: TH (occurrence: TH)
  Receive Date: 20220901
  Receipt Date: 20230206
  Transmission Date: 20230417
  Serious: Yes (Hospitalization)
  Sender: FDA-Public Use
  Company Number: TH-JNJFOC-20220849070

PATIENT
  Age: 68 Year
  Sex: Male

DRUGS (5)
  1. UPTRAVI [Suspect]
     Active Substance: SELEXIPAG
     Indication: Pulmonary arterial hypertension
     Dosage: POSTPONE TAKING MEDICINE UNTIL 22-AUG-2022
     Route: 048
     Dates: start: 20211021
  2. UPTRAVI [Suspect]
     Active Substance: SELEXIPAG
     Route: 048
     Dates: start: 20211007
  3. OPSUMIT [Suspect]
     Active Substance: MACITENTAN
     Indication: Pulmonary arterial hypertension
     Dosage: POSTPONE TAKING MEDICINE UNTIL 22-AUG-2022
     Route: 048
     Dates: start: 20211021
  4. OPSUMIT [Suspect]
     Active Substance: MACITENTAN
     Route: 048
     Dates: start: 20211007
  5. OPSUMIT [Suspect]
     Active Substance: MACITENTAN
     Route: 048

REACTIONS (4)
  - Pallor [Recovering/Resolving]
  - Asthenia [Recovering/Resolving]
  - Blood test abnormal [Recovering/Resolving]
  - Fall [Not Recovered/Not Resolved]

NARRATIVE: CASE EVENT DATE: 20220818
